FAERS Safety Report 5913359-0 (Version None)
Quarter: 2008Q4

REPORT INFORMATION
  Report Type: 
  Country: None (occurrence: None)
  Receive Date: 20081009
  Receipt Date: 20080930
  Transmission Date: 20090506
  Serious: Yes (Hospitalization, Other)
  Sender: FDA-Public Use
  Company Number: PHHY2008JP21040

PATIENT

DRUGS (4)
  1. TEGRETOL [Suspect]
     Indication: BIPOLAR I DISORDER
     Dosage: 5 MG, QD
     Route: 048
     Dates: start: 20080708, end: 20080831
  2. ARICEPT [Suspect]
     Indication: DEMENTIA
     Dosage: 5 MG
     Route: 048
  3. LENDORMIN [Concomitant]
     Indication: INSOMNIA
     Dosage: 0.25 MG
     Route: 048
  4. DEPAS [Concomitant]
     Indication: INSOMNIA
     Dosage: 0.5 MG
     Route: 048

REACTIONS (14)
  - BACK PAIN [None]
  - BASOPHIL COUNT INCREASED [None]
  - DRUG ERUPTION [None]
  - EOSINOPHIL COUNT INCREASED [None]
  - HAEMATOCRIT DECREASED [None]
  - HAEMOGLOBIN DECREASED [None]
  - LUMBAR VERTEBRAL FRACTURE [None]
  - LYMPHOCYTE COUNT DECREASED [None]
  - MONOCYTE COUNT INCREASED [None]
  - PLATELET COUNT DECREASED [None]
  - POSTURE ABNORMAL [None]
  - PYREXIA [None]
  - RED BLOOD CELL COUNT DECREASED [None]
  - WHITE BLOOD CELL COUNT DECREASED [None]
